FAERS Safety Report 5984170-X (Version None)
Quarter: 2008Q4

REPORT INFORMATION
  Report Type: 
  Country: None (occurrence: None)
  Receive Date: 20081208
  Receipt Date: 20081126
  Transmission Date: 20090506
  Serious: Yes (Other)
  Sender: FDA-Public Use
  Company Number: JP-SANOFI-SYNTHELABO-A01200812058

PATIENT
  Age: 76 Year
  Sex: Male
  Weight: 59.5 kg

DRUGS (8)
  1. RENIVACE [Concomitant]
     Indication: HYPERTENSION
     Route: 048
     Dates: end: 20080712
  2. LIVALO [Concomitant]
     Indication: LIPIDS ABNORMAL
     Route: 048
     Dates: start: 20080708
  3. ARTIST [Concomitant]
     Indication: ACUTE MYOCARDIAL INFARCTION
     Route: 048
     Dates: start: 20080704
  4. BLOPRESS [Concomitant]
     Indication: HYPERTENSION
     Route: 048
     Dates: start: 20080713
  5. PLAVIX [Suspect]
     Indication: PERCUTANEOUS CORONARY INTERVENTION
     Route: 048
     Dates: start: 20080703, end: 20080818
  6. PLAVIX [Suspect]
     Indication: STENT PLACEMENT
     Route: 048
     Dates: start: 20080703, end: 20080818
  7. PLAVIX [Suspect]
     Indication: ACUTE MYOCARDIAL INFARCTION
     Route: 048
     Dates: start: 20080703, end: 20080818
  8. ASPIRIN [Concomitant]
     Indication: ANGINA PECTORIS
     Route: 048

REACTIONS (1)
  - LIVER FUNCTION TEST ABNORMAL [None]
